FAERS Safety Report 11718862 (Version 1)
Quarter: 2015Q4

REPORT INFORMATION
  Report Type: Spontaneous
  Country: US (occurrence: None)
  Receive Date: 20151109
  Receipt Date: 20151109
  Transmission Date: 20160304
  Serious: Yes (Other)
  Sender: FDA-Public Use
  Company Number: None

PATIENT
  Age: 45 Year
  Sex: Female
  Weight: 96.16 kg

DRUGS (16)
  1. MOTRIN [Concomitant]
     Active Substance: IBUPROFEN
  2. SKELAXIN [Concomitant]
     Active Substance: METAXALONE
  3. IMITREX [Concomitant]
     Active Substance: SUMATRIPTAN\SUMATRIPTAN SUCCINATE
  4. TRAZODONE [Concomitant]
     Active Substance: TRAZODONE HYDROCHLORIDE
  5. PROTONIX [Concomitant]
     Active Substance: PANTOPRAZOLE SODIUM
  6. CYMBALTA [Concomitant]
     Active Substance: DULOXETINE HYDROCHLORIDE
  7. VALTREX [Concomitant]
     Active Substance: VALACYCLOVIR HYDROCHLORIDE
  8. ACYCLOVIR. [Concomitant]
     Active Substance: ACYCLOVIR
  9. TYLENOL [Concomitant]
     Active Substance: ACETAMINOPHEN
  10. MVI [Concomitant]
     Active Substance: VITAMINS
  11. CA/MG/ZINC [Concomitant]
  12. VITAMIN B COMPLEX [Concomitant]
     Active Substance: CYANOCOBALAMIN\DEXPANTHENOL\NIACINAMIDE\PYRIDOXINE HYDROCHLORIDE\RIBOFLAVIN 5^-PHOSPHATE SODIUM\THIAMINE HYDROCHLORIDE\VITAMIN B COMPLEX
  13. TOPAMAX [Suspect]
     Active Substance: TOPIRAMATE
     Indication: MIGRAINE PROPHYLAXIS
     Route: 048
     Dates: start: 20140801, end: 20151021
  14. FLEXARIL [Concomitant]
  15. FAMCYCLOVIR [Concomitant]
     Active Substance: FAMCICLOVIR
  16. VITAMIN D [Concomitant]
     Active Substance: CHOLECALCIFEROL

REACTIONS (5)
  - Genital herpes [None]
  - Pain [None]
  - Suicidal ideation [None]
  - Vulvovaginal burning sensation [None]
  - Stress [None]
